FAERS Safety Report 4997893-6 (Version None)
Quarter: 2006Q2

REPORT INFORMATION
  Report Type: 
  Country: None (occurrence: None)
  Receive Date: 20060510
  Receipt Date: 20060503
  Transmission Date: 20061013
  Serious: Yes (Other)
  Sender: FDA-Public Use
  Company Number: GB-JNJFOC-20060501772

PATIENT
  Age: 3 Decade
  Sex: Male

DRUGS (1)
  1. RISPERDAL [Suspect]
     Indication: SCHIZOPHRENIA
     Dosage: 4-6MG
     Route: 048

REACTIONS (2)
  - BLOOD PROLACTIN INCREASED [None]
  - BREAST MASS [None]
